FAERS Safety Report 7799390-1 (Version None)
Quarter: 2011Q4

REPORT INFORMATION
  Report Type: 
  Country: None (occurrence: None)
  Receive Date: 20111004
  Receipt Date: 20110920
  Transmission Date: 20120403
  Serious: Yes (Other)
  Sender: FDA-Public Use
  Company Number: 1000023642

PATIENT
  Age: 73 Year
  Sex: Female
  Weight: 41 kg

DRUGS (8)
  1. PRIMIDON (PRIMIDONE)(PRIMIDONE) [Concomitant]
  2. SPIRIVA (TIOTROPIUM BROMIDE) (18 MICROGRAM) (TIOTROPIUM BROMIDE) [Concomitant]
  3. SYMBICORT (BUDESONIDE, FORMOTEROL FUMARATE)(BUDESONIDE, FORMOTEROL FUM [Concomitant]
  4. ASS (ACETYLSALICYLIC ACID)(ACETYLSALICYLIC ACID) [Concomitant]
  5. RAMIPRIL [Concomitant]
  6. PREDNISOLONE [Concomitant]
  7. BERODUAL (IPRATROPIUM, FORMOTERCL)(IPRATRCPIUM, FORMOTEROL) [Concomitant]
  8. ROFLUMILAST (ROFLUMILAST) (TABLETS) [Suspect]
     Indication: CHRONIC OBSTRUCTIVE PULMONARY DISEASE
     Dosage: 500 MCG (500 MCG, 1 IN 1 D),ORAL
     Route: 048
     Dates: start: 20110719, end: 20110818

REACTIONS (3)
  - GENERAL PHYSICAL HEALTH DETERIORATION [None]
  - CHILLS [None]
  - VISUAL IMPAIRMENT [None]
